FAERS Safety Report 19364365 (Version 1)
Quarter: 2021Q2

REPORT INFORMATION
  Report Type: Spontaneous
  Country: US (occurrence: US)
  Receive Date: 20210602
  Receipt Date: 20210602
  Transmission Date: 20210717
  Serious: Yes (Hospitalization, Disabling)
  Sender: FDA-Public Use
  Company Number: None

PATIENT
  Sex: Female

DRUGS (1)
  1. CIPROFLOXACIN. [Suspect]
     Active Substance: CIPROFLOXACIN
     Indication: CYSTITIS
     Dates: start: 20181119, end: 20181129

REACTIONS (7)
  - Impaired work ability [None]
  - Pain in extremity [None]
  - Anxiety [None]
  - Feeling abnormal [None]
  - Ear discomfort [None]
  - Asphyxia [None]
  - Insomnia [None]

NARRATIVE: CASE EVENT DATE: 20190415
